FAERS Safety Report 6658014-7 (Version None)
Quarter: 2010Q1

REPORT INFORMATION
  Report Type: 
  Country: None (occurrence: None)
  Receive Date: 20100330
  Receipt Date: 20100317
  Transmission Date: 20100710
  Serious: Yes (Hospitalization)
  Sender: FDA-Public Use
  Company Number: US-ELI_LILLY_AND_COMPANY-US201003007570

PATIENT
  Sex: Male
  Weight: 94.331 kg

DRUGS (10)
  1. BYETTA [Suspect]
     Indication: TYPE 2 DIABETES MELLITUS
     Dosage: 5 UG, 2/D
     Route: 058
     Dates: start: 20050101
  2. BYETTA [Suspect]
     Dosage: 10 UG, 2/D
     Route: 058
  3. BYETTA [Suspect]
     Dosage: 10 UG, 2/D
     Route: 058
  4. COZAAR [Concomitant]
     Dosage: 50 MG, 2/D
  5. ACTOS /SCH/ [Concomitant]
     Dosage: 45 MG, DAILY (1/D)
  6. ZOCOR [Concomitant]
     Dosage: 40 MG, DAILY (1/D)
  7. NORVASC [Concomitant]
     Dosage: 5 MG, 2/D
  8. GLYBURIDE [Concomitant]
     Dosage: 2.5 MG, 2/D
  9. METFORMIN (GLUCOPHAGE) [Concomitant]
     Dosage: 500 MG, 2/D
  10. HYDROCHLOROTHIAZIDE [Concomitant]
     Dosage: 12.5 MG, DAILY (1/D)

REACTIONS (3)
  - DISORIENTATION [None]
  - FALL [None]
  - VERTIGO POSITIONAL [None]
